FAERS Safety Report 9805417 (Version 1)
Quarter: 2014Q1

REPORT INFORMATION
  Report Type: Spontaneous
  Country: US (occurrence: None)
  Receive Date: 20140108
  Receipt Date: 20140108
  Transmission Date: 20141002
  Serious: Yes (Life-Threatening, Disabling)
  Sender: FDA-Public Use
  Company Number: None

PATIENT
  Age: 33 Year
  Sex: Female
  Weight: 83.92 kg

DRUGS (1)
  1. HUMIRA [Suspect]
     Indication: PSORIASIS
     Dosage: 2 PENS 1 ST, THEN 1

REACTIONS (7)
  - Paraesthesia [None]
  - Urticaria [None]
  - Rash generalised [None]
  - Skin haemorrhage [None]
  - Hypersensitivity [None]
  - Dyspnoea [None]
  - Dysphagia [None]
